FAERS Safety Report 13865359 (Version 1)
Quarter: 2017Q3

REPORT INFORMATION
  Report Type: Spontaneous
  Country: GB (occurrence: GB)
  Receive Date: 20170814
  Receipt Date: 20170814
  Transmission Date: 20171127
  Serious: Yes (Other)
  Sender: FDA-Public Use
  Company Number: GB-UCBSA-2017031312

PATIENT
  Age: 90 Year
  Sex: Male

DRUGS (1)
  1. ROTIGOTINE [Suspect]
     Active Substance: ROTIGOTINE
     Indication: PRODUCT USED FOR UNKNOWN INDICATION
     Dosage: 8 MG, TWO PATCHES OF ROTIGOTINE 4 MG EACH
     Route: 062
     Dates: start: 20170124, end: 2017

REACTIONS (5)
  - Extra dose administered [Unknown]
  - Accidental overdose [Unknown]
  - Dysphagia [Recovered/Resolved]
  - Somnolence [Recovered/Resolved]
  - Confusional state [Recovered/Resolved]

NARRATIVE: CASE EVENT DATE: 20170124
